FAERS Safety Report 14246103 (Version 1)
Quarter: 2017Q4

REPORT INFORMATION
  Report Type: Report from Study
  Country: US (occurrence: US)
  Receive Date: 20171204
  Receipt Date: 20171204
  Transmission Date: 20180321
  Serious: Yes (Other)
  Sender: FDA-Public Use
  Company Number: PHHY2016US032554

PATIENT
  Age: 43 Year
  Sex: Male

DRUGS (1)
  1. GILENYA [Suspect]
     Active Substance: FINGOLIMOD HYDROCHLORIDE
     Indication: MULTIPLE SCLEROSIS
     Dosage: UNK, QD
     Route: 048

REACTIONS (9)
  - Condition aggravated [Unknown]
  - Decreased activity [Unknown]
  - Lymphocyte count decreased [Unknown]
  - Myelopathy [Unknown]
  - Multiple sclerosis relapse [Recovered/Resolved]
  - Dysmetria [Unknown]
  - Concomitant disease aggravated [Unknown]
  - White blood cell count decreased [Unknown]
  - Muscular weakness [Unknown]

NARRATIVE: CASE EVENT DATE: 20160129
